FAERS Safety Report 20494389 (Version 1)
Quarter: 2022Q1

REPORT INFORMATION
  Report Type: Spontaneous
  Country: JP (occurrence: JP)
  Receive Date: 20220221
  Receipt Date: 20220221
  Transmission Date: 20220423
  Serious: Yes (Other)
  Sender: FDA-Public Use
  Company Number: JP-SUN PHARMACEUTICAL INDUSTRIES LTD-2022RR-324151

PATIENT
  Age: 72 Year
  Sex: Male

DRUGS (3)
  1. CAPECITABINE [Suspect]
     Active Substance: CAPECITABINE
     Indication: Chemotherapy
     Dosage: 2000 MILLIGRAM/SQ. METER, DAILY
     Route: 065
  2. CAPECITABINE [Suspect]
     Active Substance: CAPECITABINE
     Dosage: 1500 MILLIGRAM/SQ. METER, 14 DAYS CONTINUOUS ORAL ADMINISTRATION, 7 DAYS OFF
     Route: 048
  3. OXALIPLATIN [Suspect]
     Active Substance: OXALIPLATIN
     Indication: Chemotherapy
     Dosage: 130 MILLIGRAM/SQ. METER, DAILY, 1ST DAY OF ADMINISTRATION ON DAY 21 OF THE COURSE 1
     Route: 065

REACTIONS (2)
  - Splenorenal shunt [Unknown]
  - Palmar-plantar erythrodysaesthesia syndrome [Unknown]
